FAERS Safety Report 13536707 (Version 1)
Quarter: 2017Q2

REPORT INFORMATION
  Report Type: Spontaneous
  Country: DE (occurrence: DE)
  Receive Date: 20170511
  Receipt Date: 20170511
  Transmission Date: 20170830
  Serious: Yes (Other)
  Sender: FDA-Public Use
  Company Number: DE-ASCEND THERAPEUTICS-2020598

PATIENT
  Age: 48 Year
  Sex: Female

DRUGS (7)
  1. PROGESTAN (PROGESTERONE) [Suspect]
     Active Substance: PROGESTERONE
     Route: 048
     Dates: start: 20161224, end: 20170424
  2. PROGESTAN (PROGESTERONE) [Suspect]
     Active Substance: PROGESTERONE
     Route: 067
     Dates: start: 20170424
  3. PROGESTAN (PROGESTERONE) [Suspect]
     Active Substance: PROGESTERONE
     Route: 048
     Dates: start: 2015, end: 20161224
  4. ESTROGEL [Suspect]
     Active Substance: ESTRADIOL
     Route: 062
     Dates: start: 2015, end: 20161224
  5. ESTROGEL [Suspect]
     Active Substance: ESTRADIOL
     Route: 062
     Dates: start: 20170424
  6. LEVOTHYROXINE. [Concomitant]
     Active Substance: LEVOTHYROXINE
     Route: 065
  7. ESTROGEL [Suspect]
     Active Substance: ESTRADIOL
     Indication: MENOPAUSAL DISORDER
     Route: 062
     Dates: start: 20161224

REACTIONS (9)
  - Migraine [Recovering/Resolving]
  - Panic attack [Recovering/Resolving]
  - Rash erythematous [Recovered/Resolved]
  - Off label use [None]
  - Circulatory collapse [Recovered/Resolved]
  - Anaphylactoid shock [Recovered/Resolved]
  - Dizziness [Recovering/Resolving]
  - Nervousness [Recovering/Resolving]
  - Photosensitivity reaction [Not Recovered/Not Resolved]

NARRATIVE: CASE EVENT DATE: 201612
